FAERS Safety Report 17854220 (Version 1)
Quarter: 2020Q2

REPORT INFORMATION
  Report Type: Spontaneous
  Country: US (occurrence: US)
  Receive Date: 20200603
  Receipt Date: 20200603
  Transmission Date: 20200714
  Serious: Yes (Other)
  Sender: FDA-Public Use
  Company Number: US-HIKMA PHARMACEUTICALS USA INC.-US-H14001-20-02633

PATIENT
  Age: 41 Year
  Sex: Female

DRUGS (15)
  1. LITHIUM. [Suspect]
     Active Substance: LITHIUM
     Route: 065
     Dates: start: 201502, end: 201502
  2. ZOPICLONE [Suspect]
     Active Substance: ZOPICLONE
     Route: 065
     Dates: end: 2015
  3. LEVOTHYROXINE. [Concomitant]
     Active Substance: LEVOTHYROXINE
     Indication: HYPOTHYROIDISM
     Route: 065
     Dates: start: 201410, end: 201503
  4. LITHIUM. [Suspect]
     Active Substance: LITHIUM
     Route: 065
     Dates: start: 201502, end: 201502
  5. CITALOPRAM [Suspect]
     Active Substance: CITALOPRAM HYDROBROMIDE
     Route: 065
     Dates: start: 201502, end: 201503
  6. LITHIUM. [Suspect]
     Active Substance: LITHIUM
     Route: 065
     Dates: start: 201502, end: 201502
  7. ZOPICLONE [Suspect]
     Active Substance: ZOPICLONE
     Route: 065
     Dates: end: 2015
  8. CITALOPRAM [Suspect]
     Active Substance: CITALOPRAM HYDROBROMIDE
     Route: 065
     Dates: start: 201502, end: 201502
  9. LITHIUM. [Suspect]
     Active Substance: LITHIUM
     Indication: BIPOLAR DISORDER
     Route: 065
     Dates: start: 201308, end: 201502
  10. CITALOPRAM [Suspect]
     Active Substance: CITALOPRAM HYDROBROMIDE
     Indication: PERSISTENT DEPRESSIVE DISORDER
     Route: 065
     Dates: start: 2005, end: 201502
  11. CITALOPRAM [Suspect]
     Active Substance: CITALOPRAM HYDROBROMIDE
     Route: 065
     Dates: start: 2005, end: 201502
  12. LITHIUM. [Suspect]
     Active Substance: LITHIUM
     Route: 065
     Dates: start: 201502, end: 201502
  13. ZOPICLONE [Suspect]
     Active Substance: ZOPICLONE
     Indication: SLEEP DISORDER
     Route: 065
     Dates: end: 2015
  14. ALPRAZOLAM. [Suspect]
     Active Substance: ALPRAZOLAM
     Indication: SLEEP DISORDER
     Route: 065
  15. QUETIAPINE. [Suspect]
     Active Substance: QUETIAPINE
     Indication: BIPOLAR DISORDER
     Route: 065
     Dates: start: 2008, end: 2015

REACTIONS (2)
  - Cognitive disorder [Recovered/Resolved]
  - Hypothyroidism [Recovered/Resolved]

NARRATIVE: CASE EVENT DATE: 201410
